FAERS Safety Report 26088561 (Version 1)
Quarter: 2025Q4

REPORT INFORMATION
  Report Type: Spontaneous
  Country: US (occurrence: US)
  Receive Date: 20251125
  Receipt Date: 20251125
  Transmission Date: 20260117
  Serious: Yes (Hospitalization)
  Sender: EVOKE PHARMA, INC.
  Company Number: US-EVOKE PHARMA, INC.-2025EVO000160

PATIENT

DRUGS (3)
  1. GIMOTI [Suspect]
     Active Substance: METOCLOPRAMIDE HYDROCHLORIDE
     Indication: Impaired gastric emptying
     Dosage: 15 MILLIGRAM, TID
     Route: 045
     Dates: start: 20250911, end: 20251109
  2. LASIX [Concomitant]
     Active Substance: FUROSEMIDE
     Indication: Oedema peripheral
     Route: 065
  3. LASIX [Concomitant]
     Active Substance: FUROSEMIDE
     Indication: Oedema peripheral

REACTIONS (3)
  - Oedema [Unknown]
  - Muscle spasms [Unknown]
  - Dyskinesia [Unknown]

NARRATIVE: CASE EVENT DATE: 20251001
